FAERS Safety Report 5537076-4 (Version None)
Quarter: 2007Q4

REPORT INFORMATION
  Report Type: 
  Country: None (occurrence: None)
  Receive Date: 20071207
  Receipt Date: 20071206
  Transmission Date: 20080405
  Serious: Yes (Hospitalization)
  Sender: FDA-Public Use
  Company Number: US-BRISTOL-MYERS SQUIBB COMPANY-14003560

PATIENT
  Age: 65 Year
  Sex: Male

DRUGS (4)
  1. CIBENZOLINE [Suspect]
     Indication: VENTRICULAR EXTRASYSTOLES
     Dosage: CIBENZOLINE (ORAL)380MG/DAY THEN 6MG/KG/DAY
     Route: 048
  2. CAPTOPRIL [Suspect]
     Dosage: DOSE CHANGED TO 50MG/DAY
  3. FUROSEMIDE [Suspect]
     Dosage: DOSE REDUCED TO 20MG/DAY
  4. GLIBENCLAMIDE [Suspect]

REACTIONS (7)
  - CARDIOGENIC SHOCK [None]
  - CONDUCTION DISORDER [None]
  - HYPERKALAEMIA [None]
  - LIVER DISORDER [None]
  - NAUSEA [None]
  - RENAL FAILURE [None]
  - VOMITING [None]
